FAERS Safety Report 5283779-9 (Version None)
Quarter: 2007Q1

REPORT INFORMATION
  Report Type: 
  Country: None (occurrence: None)
  Receive Date: 20061226
  Receipt Date: 20060320
  Transmission Date: 20070707
  Serious: Yes (Other)
  Sender: FDA-Public Use
  Company Number: 2006S1000063

PATIENT
  Age: 45 Year
  Sex: Male

DRUGS (2)
  1. ACITRETIN [Suspect]
     Indication: PITYRIASIS RUBRA PILARIS
     Dosage: PO
     Route: 048
     Dates: start: 19930101
  2. ACITRETIN [Suspect]
     Indication: PSORIASIS
     Dosage: PO
     Route: 048
     Dates: start: 19930101

REACTIONS (2)
  - EXOSTOSIS [None]
  - INCREASED TENDENCY TO BRUISE [None]
